FAERS Safety Report 7424605-9 (Version None)
Quarter: 2011Q2

REPORT INFORMATION
  Report Type: 
  Country: None (occurrence: None)
  Receive Date: 20110419
  Receipt Date: 20110408
  Transmission Date: 20111010
  Serious: No
  Sender: FDA-Public Use
  Company Number: US-ROXANE LABORATORIES, INC.-2011-RO-00513RO

PATIENT

DRUGS (1)
  1. BUPRENORPHINE HYDROCHLORIDE [Suspect]

REACTIONS (2)
  - LIBIDO DECREASED [None]
  - WRONG TECHNIQUE IN DRUG USAGE PROCESS [None]
